FAERS Safety Report 3681493 (Version 2)
Quarter: 2015Q2

REPORT INFORMATION
  Report Type: Spontaneous
  Country: JP (occurrence: JP)
  Receive Date: 20010712
  Receipt Date: 20150430
  Transmission Date: 20150821
  Serious: Yes (Death)
  Sender: FDA-Public Use
  Company Number: PHBS2001JP02010

PATIENT
  Age: 81 Year
  Sex: Male
  Weight: 41 kg

DRUGS (11)
  1. DIOVAN [Suspect]
     Active Substance: VALSARTAN
     Indication: HYPERTENSION
     Dosage: 80 MG/DAY
     Route: 048
     Dates: start: 20001106, end: 20001223
  2. TANATRIL [Concomitant]
     Active Substance: IMIDAPRIL
     Dates: end: 20001105
  3. NOVPHYLLIN [Concomitant]
     Dates: start: 19821214, end: 20010321
  4. DIOVAN [Suspect]
     Active Substance: VALSARTAN
     Route: 048
     Dates: start: 20001106, end: 20001222
  5. BASEN [Concomitant]
     Active Substance: VOGLIBOSE
     Dates: start: 20000425, end: 20010321
  6. VEGA [Concomitant]
     Dates: end: 20010321
  7. LEFTOSE [Concomitant]
     Dates: end: 20010321
  8. NORVASC [Concomitant]
     Active Substance: AMLODIPINE BESYLATE
     Dates: end: 20010321
  9. THEO SLOW [Concomitant]
     Dates: end: 20010321
  10. PRANLUKAST [Concomitant]
     Active Substance: PRANLUKAST
     Dates: end: 20010321
  11. MUCOSTA [Concomitant]
     Active Substance: REBAMIPIDE
     Dates: start: 20000425, end: 20010321

REACTIONS (12)
  - Fall [Unknown]
  - Orthostatic hypotension [Unknown]
  - Asthma [Fatal]
  - Blood pressure decreased [Recovered/Resolved]
  - Dizziness [Recovered/Resolved]
  - Hypertension [Unknown]
  - Decreased appetite [Recovered/Resolved]
  - Hypotension [Recovered/Resolved]
  - Abasia [Recovered/Resolved]
  - Anaemia [Unknown]
  - Joint injury [Unknown]
  - Malaise [Recovered/Resolved]

NARRATIVE: CASE EVENT DATE: 20001209
